FAERS Safety Report 4536985-2 (Version None)
Quarter: 2004Q4

REPORT INFORMATION
  Report Type: 
  Country: None (occurrence: None)
  Receive Date: 20041220
  Receipt Date: 20041203
  Transmission Date: 20050328
  Serious: Yes (Hospitalization)
  Sender: FDA-Public Use
  Company Number: F01200403836

PATIENT
  Age: 60 Year
  Sex: Male

DRUGS (2)
  1. (OXALIPLATIN) - SOLUTION - 60 MG/M2 [Suspect]
     Indication: OESOPHAGEAL CARCINOMA
     Dosage: 60 MG/M2 1/WEEK, INTRAVENOUS NOS
     Route: 042
     Dates: start: 20041124, end: 20041124
  2. FLUOROURACIL [Suspect]
     Dosage: 225 MG/M2 CONT, INTRAVENOUS NOS
     Route: 042
     Dates: start: 20041103, end: 20041124

REACTIONS (5)
  - CHRONIC OBSTRUCTIVE AIRWAYS DISEASE EXACERBATED [None]
  - INFECTION [None]
  - MALAISE [None]
  - TREATMENT NONCOMPLIANCE [None]
  - WHEEZING [None]
